FAERS Safety Report 7950401-X (Version None)
Quarter: 2011Q4

REPORT INFORMATION
  Report Type: 
  Country: None (occurrence: None)
  Receive Date: 20111130
  Receipt Date: 20111117
  Transmission Date: 20120403
  Serious: Yes (Hospitalization, Other)
  Sender: FDA-Public Use
  Company Number: IE-MEDIMMUNE-MEDI-0013958

PATIENT
  Sex: Male
  Weight: 6.1 kg

DRUGS (4)
  1. SYNAGIS [Suspect]
     Route: 030
     Dates: start: 20110916, end: 20110916
  2. ERGOCALCIFEROL [Concomitant]
  3. FERROUS SULFATE TAB [Concomitant]
  4. LANSOPRAZOLE [Concomitant]

REACTIONS (2)
  - UPPER RESPIRATORY TRACT INFECTION [None]
  - VIRAL INFECTION [None]
